FAERS Safety Report 26191653 (Version 1)
Quarter: 2025Q4

REPORT INFORMATION
  Report Type: Spontaneous
  Country: US (occurrence: US)
  Receive Date: 20251223
  Receipt Date: 20251223
  Transmission Date: 20260117
  Serious: No
  Sender: ROCHE
  Company Number: US-ROCHE-10000461355

PATIENT
  Sex: Female

DRUGS (12)
  1. XOLAIR PFS [Suspect]
     Active Substance: OMALIZUMAB
     Indication: Asthma
     Route: 058
  2. XOLAIR PFS [Suspect]
     Active Substance: OMALIZUMAB
  3. ALENDRONATE [Concomitant]
     Active Substance: ALENDRONATE SODIUM
  4. ATORVASTATIN [Concomitant]
     Active Substance: ATORVASTATIN
  5. BIOFLEX TAB [Concomitant]
  6. LEVOTHYROXIN TAB 88 MCG [Concomitant]
  7. MAGNESIUM TAB 400 MG [Concomitant]
  8. MULTIVITAMIN TAB [Concomitant]
  9. POTASSIUM TAB 99 MG [Concomitant]
  10. TRAMADOL HCL [Concomitant]
     Active Substance: TRAMADOL HYDROCHLORIDE
  11. trazodone hc tab 50 mg [Concomitant]
  12. CETRIZINE H TAB 10 MG [Concomitant]

REACTIONS (2)
  - Fatigue [Unknown]
  - Insomnia [Unknown]
